FAERS Safety Report 8138231-X (Version None)
Quarter: 2012Q1

REPORT INFORMATION
  Report Type: 
  Country: None (occurrence: None)
  Receive Date: 20120215
  Receipt Date: 20120202
  Transmission Date: 20120608
  Serious: Yes (Hospitalization)
  Sender: FDA-Public Use
  Company Number: PHFR2011GB006724

PATIENT
  Sex: Male

DRUGS (2)
  1. CLOZARIL [Suspect]
     Indication: SCHIZOPHRENIA
     Route: 048
     Dates: start: 20081230
  2. CLOZARIL [Suspect]
     Route: 048

REACTIONS (3)
  - VOMITING [None]
  - CHOLELITHIASIS [None]
  - ABDOMINAL PAIN [None]
